FAERS Safety Report 23914726 (Version 1)
Quarter: 2024Q2

REPORT INFORMATION
  Report Type: Spontaneous
  Country: US (occurrence: None)
  Receive Date: 20240529
  Receipt Date: 20240529
  Transmission Date: 20240716
  Serious: Yes (Other)
  Sender: FDA-Public Use
  Company Number: US-ROCHE-3569397

PATIENT
  Sex: Female
  Weight: 49.486 kg

DRUGS (17)
  1. ACTEMRA [Suspect]
     Active Substance: TOCILIZUMAB
     Indication: Giant cell arteritis
     Dosage: 162MG/0.9ML
     Route: 058
     Dates: start: 202401
  2. ACTEMRA [Suspect]
     Active Substance: TOCILIZUMAB
     Dosage: EVERY 17-18 DAYS
     Route: 058
     Dates: end: 202401
  3. ACTEMRA [Suspect]
     Active Substance: TOCILIZUMAB
     Route: 058
  4. VALIUM [Suspect]
     Active Substance: DIAZEPAM
     Indication: Anxiety
     Dosage: 1 TABLET OF 5MG TWICE A DAY AS NEEDED
     Route: 048
     Dates: end: 20240521
  5. KLONOPIN [Suspect]
     Active Substance: CLONAZEPAM
     Indication: Anxiety
     Dosage: 0.5MG TABLET, 1 TABLET TWICE PER DAY AS NEEDED
     Route: 048
     Dates: start: 20240521
  6. PREDNISONE [Suspect]
     Active Substance: PREDNISONE
     Indication: Giant cell arteritis
     Dosage: TAPERING DOSE
     Route: 048
  7. PREDNISONE [Suspect]
     Active Substance: PREDNISONE
     Route: 048
     Dates: start: 2016
  8. AMOXICILLIN [Suspect]
     Active Substance: AMOXICILLIN
     Indication: Pneumonia
     Route: 065
  9. PROLIA [Suspect]
     Active Substance: DENOSUMAB
     Indication: Bone disorder
     Route: 065
  10. LOSARTAN POTASSIUM [Concomitant]
     Active Substance: LOSARTAN POTASSIUM
     Dosage: IN THE MORNING WITH BREAKFAST
     Route: 048
  11. VITAMIN D3 [Concomitant]
     Active Substance: CHOLECALCIFEROL
     Dosage: EVERY MORNING WITH BREAKFAST
     Route: 048
  12. ASPIRIN [Concomitant]
     Active Substance: ASPIRIN
     Dosage: EVERY MORNING WITH BREAKFAST
     Route: 048
  13. ASCORBIC ACID\VITAMIN B COMPLEX [Concomitant]
     Active Substance: ASCORBIC ACID\VITAMIN B COMPLEX
     Route: 048
  14. CELEXA [Concomitant]
     Active Substance: CITALOPRAM HYDROBROMIDE
     Route: 048
  15. PRAVASTATIN [Concomitant]
     Active Substance: PRAVASTATIN
     Dosage: IN THE MORNING WITH BREAKFAST
     Route: 048
  16. ZOLOFT [Concomitant]
     Active Substance: SERTRALINE HYDROCHLORIDE
  17. CITALOPRAM [Concomitant]
     Active Substance: CITALOPRAM\CITALOPRAM HYDROBROMIDE

REACTIONS (25)
  - Pneumonia [Recovered/Resolved]
  - Pain [Recovered/Resolved]
  - Discomfort [Not Recovered/Not Resolved]
  - Weight decreased [Not Recovered/Not Resolved]
  - Appetite disorder [Not Recovered/Not Resolved]
  - Macular degeneration [Not Recovered/Not Resolved]
  - C-reactive protein increased [Recovered/Resolved]
  - Tooth infection [Recovered/Resolved]
  - Anxiety [Not Recovered/Not Resolved]
  - Gastrointestinal disorder [Recovering/Resolving]
  - Swelling [Recovered/Resolved]
  - Swelling face [Recovered/Resolved]
  - Sleep disorder [Recovered/Resolved]
  - Ill-defined disorder [Not Recovered/Not Resolved]
  - Osteoarthritis [Not Recovered/Not Resolved]
  - Spinal fracture [Recovered/Resolved]
  - Rib fracture [Recovered/Resolved]
  - Depression [Not Recovered/Not Resolved]
  - Urticaria [Recovered/Resolved]
  - Pancreatic cyst [Not Recovered/Not Resolved]
  - Red blood cell sedimentation rate increased [Recovered/Resolved]
  - Fatigue [Unknown]
  - Drug hypersensitivity [Not Recovered/Not Resolved]
  - Dysstasia [Unknown]
  - Off label use [Unknown]

NARRATIVE: CASE EVENT DATE: 20170101
